FAERS Safety Report 8358737-8 (Version None)
Quarter: 2012Q2

REPORT INFORMATION
  Report Type: 
  Country: None (occurrence: None)
  Receive Date: 20120514
  Receipt Date: 20120424
  Transmission Date: 20120825
  Serious: Yes (Death, Hospitalization)
  Sender: FDA-Public Use
  Company Number: US-BAXTER-2012BAX003892

PATIENT
  Sex: Female

DRUGS (2)
  1. DIANEAL [Suspect]
     Indication: PERITONEAL DIALYSIS
     Route: 033
     Dates: end: 20120418
  2. DIANEAL [Suspect]
     Route: 033
     Dates: end: 20120418

REACTIONS (5)
  - LOSS OF CONSCIOUSNESS [None]
  - ARRHYTHMIA [None]
  - BLOOD GLUCOSE DECREASED [None]
  - CALCIPHYLAXIS [None]
  - LOCALISED INFECTION [None]
